FAERS Safety Report 12240306 (Version 2)
Quarter: 2016Q2

REPORT INFORMATION
  Report Type: Report from Study
  Country: US (occurrence: US)
  Receive Date: 20160405
  Receipt Date: 20160419
  Transmission Date: 20160815
  Serious: No
  Sender: FDA-Public Use
  Company Number: US-BIOGEN-2016BI00214800

PATIENT
  Sex: Male

DRUGS (2)
  1. TECFIDERA [Suspect]
     Active Substance: DIMETHYL FUMARATE
     Route: 048
     Dates: start: 201602
  2. TECFIDERA [Suspect]
     Active Substance: DIMETHYL FUMARATE
     Indication: MULTIPLE SCLEROSIS
     Route: 048
     Dates: start: 201602

REACTIONS (10)
  - Malaise [Unknown]
  - Peripheral swelling [Unknown]
  - Orthopnoea [Unknown]
  - Nausea [Unknown]
  - Early satiety [Unknown]
  - Ageusia [Unknown]
  - Dyspnoea [Unknown]
  - Abdominal distension [Unknown]
  - Vomiting [Unknown]
  - Intentional product misuse [Unknown]
